FAERS Safety Report 7950394-5 (Version None)
Quarter: 2011Q4

REPORT INFORMATION
  Report Type: 
  Country: None (occurrence: None)
  Receive Date: 20111130
  Receipt Date: 20111127
  Transmission Date: 20120403
  Serious: No
  Sender: FDA-Public Use
  Company Number: US-TEVA-311389USA

PATIENT
  Sex: Female
  Weight: 77.18 kg

DRUGS (7)
  1. LANTUS [Concomitant]
     Indication: DIABETES MELLITUS
     Dosage: 40 ;
     Dates: start: 19970101
  2. PHENTERMINE [Concomitant]
     Indication: WEIGHT DECREASED
     Dosage: 31 MILLIGRAM;
     Route: 048
     Dates: start: 20110901
  3. NOVOLOG [Concomitant]
     Indication: DIABETES MELLITUS
     Dosage: SLIDING SCALE
     Dates: start: 19970101
  4. SYNTHROID [Concomitant]
     Indication: HYPOTHYROIDISM
     Route: 048
     Dates: start: 20090101
  5. EFFEXOR XR [Concomitant]
     Indication: DEPRESSION
     Dosage: 225 MILLIGRAM;
     Route: 048
  6. PLAN B ONE-STEP [Suspect]
     Indication: POST COITAL CONTRACEPTION
     Dosage: 1.5 MILLIGRAM;
     Route: 048
     Dates: start: 20111115, end: 20111115
  7. KLONOPIN [Concomitant]
     Indication: ANXIETY
     Dosage: 1.5 MILLIGRAM;
     Route: 048

REACTIONS (1)
  - NAUSEA [None]
